FAERS Safety Report 6029937-7 (Version None)
Quarter: 2009Q1

REPORT INFORMATION
  Report Type: 
  Country: None (occurrence: None)
  Receive Date: 20090107
  Receipt Date: 20080702
  Transmission Date: 20090719
  Serious: Yes (Death)
  Sender: FDA-Public Use
  Company Number: US-BRISTOL-MYERS SQUIBB COMPANY-14248223

PATIENT
  Age: 45 Year
  Sex: Female

DRUGS (11)
  1. PERCOCET TABS 5 MG/325 MG [Suspect]
     Indication: PAIN
     Dosage: 1 DOSAGEFORM = 1 TAB EVERY 4 TO 6 HOURS.
     Route: 048
     Dates: end: 20080101
  2. TRAZODONE HCL [Suspect]
     Dosage: STRENGTH 200 MG. 1 DOSAGEFORM = 1 TAB AT BEDTIME
     Route: 048
     Dates: end: 20080101
  3. KADIAN [Suspect]
     Indication: BACK PAIN
     Dosage: FORM = CAPSULES, STRENGTH = 60 MG.
     Route: 048
     Dates: start: 20080424, end: 20080509
  4. KLONOPIN [Suspect]
     Dosage: STRENGTH = 1 MG. 1 DOSAGEFORM = 1 TABLET
     Route: 048
     Dates: end: 20080101
  5. LITHIUM [Suspect]
     Dosage: STRENGTH 500 MG. 1 DOSAGEFORM = 1 TAB
     Route: 048
     Dates: end: 20080101
  6. ZOLPIDEM [Suspect]
     Dates: end: 20080101
  7. MEPROBAMATE [Suspect]
     Dates: end: 20080101
  8. PROMETHAZINE [Suspect]
     Dates: end: 20080101
  9. ONDANSETRON [Suspect]
     Dates: end: 20080101
  10. RANITIDINE [Suspect]
  11. DURAGESIC-100 [Concomitant]
     Indication: BACK PAIN
     Dates: start: 20060401

REACTIONS (2)
  - DRUG TOXICITY [None]
  - SYNCOPE [None]
